FAERS Safety Report 17539377 (Version 2)
Quarter: 2020Q1

REPORT INFORMATION
  Report Type: Spontaneous
  Country: US (occurrence: US)
  Receive Date: 20200313
  Receipt Date: 20200327
  Transmission Date: 20200409
  Serious: Yes (Hospitalization)
  Sender: FDA-Public Use
  Company Number: US-PFIZER INC-2020106752

PATIENT
  Age: 59 Year
  Sex: Female
  Weight: 49.44 kg

DRUGS (4)
  1. ADVIL PM [Suspect]
     Active Substance: DIPHENHYDRAMINE CITRATE\IBUPROFEN
     Indication: TOOTHACHE
     Dosage: 1 DF, 1X/DAY (AT NIGHT: 200 MG IBUPROFEN/25 MG DIPHENHYDRAMINE) 9-6 HRS: 600-800
     Route: 048
     Dates: start: 202003, end: 202003
  2. ADVIL LIQUI-GELS [Suspect]
     Active Substance: IBUPROFEN
     Indication: TOOTHACHE
     Dosage: 600 MG, UNK
     Dates: start: 20200305
  3. ADVIL LIQUI-GELS [Suspect]
     Active Substance: IBUPROFEN
     Indication: ORAL SURGERY
     Dosage: 800 MG, 4X/DAY (EVERY 6 HOURS: THURSDAY, FRIDAY AND SATURDAY THEN ON SUNDAY) 9-6 HRS: 600-800
     Route: 048
     Dates: start: 20200305, end: 20200308
  4. ADVIL PM [Suspect]
     Active Substance: DIPHENHYDRAMINE CITRATE\IBUPROFEN
     Indication: ORAL SURGERY

REACTIONS (12)
  - Presyncope [Recovered/Resolved]
  - Abdominal discomfort [Unknown]
  - Malabsorption [Not Recovered/Not Resolved]
  - Intentional product use issue [Unknown]
  - Lip disorder [Not Recovered/Not Resolved]
  - Paraesthesia [Recovered/Resolved]
  - Decreased appetite [Recovered/Resolved]
  - Nausea [Recovered/Resolved]
  - Fatigue [Not Recovered/Not Resolved]
  - Blood pressure increased [Recovered/Resolved]
  - Dry mouth [Not Recovered/Not Resolved]
  - Vomiting [Recovered/Resolved]

NARRATIVE: CASE EVENT DATE: 202003
